FAERS Safety Report 5898528-0 (Version None)
Quarter: 2008Q3

REPORT INFORMATION
  Report Type: 
  Country: None (occurrence: None)
  Receive Date: 20080925
  Receipt Date: 20080205
  Transmission Date: 20090109
  Serious: No
  Sender: FDA-Public Use
  Company Number: A0701210A

PATIENT
  Age: 42 Year
  Sex: Male

DRUGS (4)
  1. WELLBUTRIN XL [Suspect]
     Indication: DEPRESSION
     Dosage: 150MG PER DAY
     Route: 048
     Dates: start: 20071221, end: 20071224
  2. WELLBUTRIN SR [Suspect]
     Indication: DEPRESSION
     Dosage: 150MG PER DAY
     Route: 048
     Dates: start: 20071224, end: 20080204
  3. LISINOPRIL [Concomitant]
  4. LEXAPRO [Concomitant]

REACTIONS (3)
  - ANXIETY [None]
  - HYPERHIDROSIS [None]
  - INSOMNIA [None]
